FAERS Safety Report 23598600 (Version 3)
Quarter: 2024Q1

REPORT INFORMATION
  Report Type: Spontaneous
  Country: JP (occurrence: JP)
  Receive Date: 20240306
  Receipt Date: 20240329
  Transmission Date: 20240409
  Serious: Yes (Hospitalization)
  Sender: FDA-Public Use
  Company Number: JP-NBI-BJ202403869

PATIENT
  Age: 69 Year
  Sex: Male

DRUGS (3)
  1. OFEV [Suspect]
     Active Substance: NINTEDANIB
     Indication: Interstitial lung disease
     Route: 048
  2. OFEV [Suspect]
     Active Substance: NINTEDANIB
     Route: 048
  3. OFEV [Suspect]
     Active Substance: NINTEDANIB
     Route: 048

REACTIONS (8)
  - Coronavirus infection [Recovered/Resolved]
  - Lung disorder [Unknown]
  - KL-6 increased [Recovered/Resolved]
  - Respiratory disorder [Not Recovered/Not Resolved]
  - Diarrhoea [Recovered/Resolved]
  - Constipation [Recovered/Resolved]
  - Muscular weakness [Not Recovered/Not Resolved]
  - Physical deconditioning [Not Recovered/Not Resolved]

NARRATIVE: CASE EVENT DATE: 20240316
